FAERS Safety Report 4837593-6 (Version None)
Quarter: 2005Q4

REPORT INFORMATION
  Report Type: 
  Country: None (occurrence: None)
  Receive Date: 20051024
  Receipt Date: 20050912
  Transmission Date: 20060501
  Serious: No
  Sender: FDA-Public Use
  Company Number: 217179

PATIENT
  Age: 48 Year

DRUGS (1)
  1. XOLAIR [Suspect]
     Indication: ASTHMA
     Dosage: 225 MG, Q2W; SUBCUTANEOUS
     Route: 058
     Dates: start: 20050706

REACTIONS (2)
  - NAUSEA [None]
  - PAIN IN EXTREMITY [None]
